FAERS Safety Report 23207051 (Version 1)
Quarter: 2023Q4

REPORT INFORMATION
  Report Type: Other
  Country: US (occurrence: US)
  Receive Date: 20231120
  Receipt Date: 20231120
  Transmission Date: 20240110
  Serious: No
  Sender: FDA-Public Use
  Company Number: US-UROVANT SCIENCES GMBH-202308-URV-001681

PATIENT
  Age: 73 Year
  Sex: Female
  Weight: 58.05 kg

DRUGS (4)
  1. GEMTESA [Suspect]
     Active Substance: VIBEGRON
     Indication: Hypertonic bladder
     Dosage: 75 MG, QD
     Route: 048
     Dates: start: 202301
  2. GEMTESA [Suspect]
     Active Substance: VIBEGRON
     Dosage: UNK
     Route: 048
     Dates: start: 202307
  3. CORTISONE [Concomitant]
     Active Substance: CORTISONE
     Indication: Pain
     Dosage: UNK
     Route: 042
  4. ESTRADIOL [Concomitant]
     Active Substance: ESTRADIOL
     Indication: Product used for unknown indication
     Dosage: UNK
     Route: 065

REACTIONS (2)
  - Incontinence [Not Recovered/Not Resolved]
  - Drug ineffective [Unknown]

NARRATIVE: CASE EVENT DATE: 20230822
